FAERS Safety Report 6613761-8 (Version None)
Quarter: 2010Q1

REPORT INFORMATION
  Report Type: 
  Country: None (occurrence: None)
  Receive Date: 20100304
  Receipt Date: 20100224
  Transmission Date: 20100710
  Serious: Yes (Hospitalization)
  Sender: FDA-Public Use
  Company Number: IT-MILLENNIUM PHARMACEUTICALS, INC.-2010-01406

PATIENT

DRUGS (9)
  1. VELCADE [Suspect]
     Indication: MULTIPLE MYELOMA
     Dosage: 2.6 MG, UNK
     Route: 042
     Dates: start: 20090303, end: 20090615
  2. DEXAMETHASONE [Concomitant]
     Dosage: 20 MG, UNK
     Route: 048
     Dates: start: 20090303
  3. BACTRIM [Concomitant]
     Dosage: 3840 MG, UNK
     Route: 048
  4. ZOVIRAX                            /00587301/ [Concomitant]
     Dosage: 400 MG, UNK
     Route: 048
  5. DILATREND [Concomitant]
     Dosage: 25 MG, UNK
     Route: 048
  6. DEURSIL [Concomitant]
     Dosage: 900 MG, UNK
  7. NOVONORM [Concomitant]
     Route: 048
  8. ARANESP [Concomitant]
     Dosage: 150 UG, UNK
     Route: 058
  9. AXAGON                             /01479301/ [Concomitant]
     Dosage: 40 MG, UNK
     Route: 048

REACTIONS (2)
  - CONSTIPATION [None]
  - NEUROTOXICITY [None]
